FAERS Safety Report 8073036-X (Version None)
Quarter: 2012Q1

REPORT INFORMATION
  Report Type: 
  Country: None (occurrence: None)
  Receive Date: 20120126
  Receipt Date: 20120119
  Transmission Date: 20120608
  Serious: Yes (Hospitalization)
  Sender: FDA-Public Use
  Company Number: CA-BAXTER-2011BH036121

PATIENT
  Age: 54 Year
  Sex: Male
  Weight: 78 kg

DRUGS (3)
  1. EXTRANEAL [Suspect]
     Indication: PERITONEAL DIALYSIS
     Route: 033
     Dates: start: 20101206, end: 20110627
  2. EXTRANEAL [Suspect]
     Indication: DIALYSIS
     Route: 033
     Dates: start: 20101206, end: 20110627
  3. PHYSIOSOL IN PLASTIC CONTAINER [Concomitant]
     Indication: PERITONEAL DIALYSIS
     Route: 033

REACTIONS (12)
  - MYOPATHY [None]
  - ANAEMIA [None]
  - HYPERSENSITIVITY [None]
  - SKIN EXFOLIATION [None]
  - MUSCLE TWITCHING [None]
  - MOTOR DYSFUNCTION [None]
  - PRURITUS [None]
  - ACTIVITIES OF DAILY LIVING IMPAIRED [None]
  - NEUROPATHY PERIPHERAL [None]
  - ASTHENIA [None]
  - ARTHRALGIA [None]
  - MALAISE [None]
